FAERS Safety Report 7618551-5 (Version None)
Quarter: 2011Q3

REPORT INFORMATION
  Report Type: 
  Country: None (occurrence: None)
  Receive Date: 20110718
  Receipt Date: 20110712
  Transmission Date: 20111222
  Serious: Yes (Other)
  Sender: FDA-Public Use
  Company Number: CHPA2011US09013

PATIENT
  Age: 60 Year
  Sex: Female
  Weight: 47.619 kg

DRUGS (7)
  1. NICOTINE [Suspect]
     Indication: SMOKING CESSATION THERAPY
     Dosage: 21 MG, QD
     Route: 062
     Dates: start: 20110602, end: 20110707
  2. FLUTICASONE PROPIONATE [Concomitant]
     Dosage: 100 MG, EACH NOSTRIL IN THE MORNING
     Route: 045
     Dates: start: 20110601
  3. SYMBICORT [Concomitant]
     Dosage: 2 DF, QD
  4. AZITHROMYCIN [Concomitant]
     Dosage: 400 MG, QD
     Route: 048
     Dates: start: 20110601
  5. FEXOFENADINE HCL [Concomitant]
     Dosage: 180 MG, QD
     Route: 048
     Dates: start: 20110601
  6. SPIRIVA [Concomitant]
     Dosage: 1 DF, QD
  7. OXYCODONE HCL [Concomitant]
     Dosage: UNK
     Route: 048
     Dates: start: 20110601

REACTIONS (4)
  - RIB FRACTURE [None]
  - COUGH [None]
  - MUSCLE SPASMS [None]
  - CHEST PAIN [None]
